FAERS Safety Report 12339883 (Version 1)
Quarter: 2016Q2

REPORT INFORMATION
  Report Type: Spontaneous
  Country: US (occurrence: US)
  Receive Date: 20160506
  Receipt Date: 20160506
  Transmission Date: 20160815
  Serious: Yes (Hospitalization)
  Sender: FDA-Public Use
  Company Number: US-BEH-2016061979

PATIENT
  Sex: Female
  Weight: 60 kg

DRUGS (5)
  1. HYDROCHLOROTHIAZIDE. [Concomitant]
     Active Substance: HYDROCHLOROTHIAZIDE
  2. PROVENTIL [Concomitant]
     Active Substance: ALBUTEROL
  3. CARDIZEM [Concomitant]
     Active Substance: DILTIAZEM HYDROCHLORIDE
  4. VERAMYST [Concomitant]
     Active Substance: FLUTICASONE FUROATE
  5. BERINERT [Suspect]
     Active Substance: HUMAN C1-ESTERASE INHIBITOR
     Indication: HEREDITARY ANGIOEDEMA
     Dosage: FREQUENCY: TWICE WEEKLY AS NEEDED
     Route: 042
     Dates: start: 20160317

REACTIONS (1)
  - Hospitalisation [Unknown]
